FAERS Safety Report 9448827 (Version 3)
Quarter: 2014Q2

REPORT INFORMATION
  Report Type: Report from Study
  Country: FR (occurrence: FR)
  Receive Date: 20130808
  Receipt Date: 20140404
  Transmission Date: 20141212
  Serious: Yes (Hospitalization)
  Sender: FDA-Public Use
  Company Number: FR-VERTEX PHARMACEUTICALS INC-2013-008643

PATIENT
  Age: 57 Year
  Sex: Male
  Weight: 90 kg

DRUGS (9)
  1. TELAPREVIR [Suspect]
     Indication: HEPATITIS C
     Dosage: TABLET, QD
     Route: 048
     Dates: start: 20130211, end: 20130510
  2. REBETOL [Concomitant]
     Indication: HEPATITIS C
     Dosage: (3-0-3)
     Route: 065
     Dates: start: 20130211
  3. PEGASYS [Concomitant]
     Indication: HEPATITIS C
     Dosage: 180 ?G, UNK
     Route: 065
     Dates: start: 20130211
  4. LOVENOX [Concomitant]
     Indication: ANTICOAGULANT THERAPY
     Dosage: 40 MG, UNK
     Route: 065
     Dates: start: 20130205
  5. INIPOMP [Concomitant]
     Indication: OESOPHAGITIS
     Dosage: 40 MG, UNK
     Route: 065
     Dates: start: 20130205
  6. PRIMPERAN [Concomitant]
     Indication: NAUSEA
     Dosage: 10 MG, UNK
     Route: 065
     Dates: start: 20130205
  7. ZOPHREN [Concomitant]
     Indication: NAUSEA
     Dosage: 4 MG, UNK
     Route: 065
     Dates: start: 20130205
  8. DIFFU K [Concomitant]
     Indication: HYPOKALAEMIA
     Dosage: UNK
     Route: 065
     Dates: start: 20130205
  9. STILNOX [Concomitant]
     Indication: INSOMNIA
     Dosage: 10 MG, UNK
     Route: 065
     Dates: start: 20130205

REACTIONS (2)
  - Small intestinal obstruction [Recovered/Resolved]
  - Strangulated hernia [Recovered/Resolved]
